FAERS Safety Report 6606607-5 (Version None)
Quarter: 2010Q1

REPORT INFORMATION
  Report Type: 
  Country: None (occurrence: None)
  Receive Date: 20100226
  Receipt Date: 20100216
  Transmission Date: 20100710
  Serious: Yes (Hospitalization, Other)
  Sender: FDA-Public Use
  Company Number: GB-PFIZER INC-2009300741

PATIENT
  Age: 45 Year
  Sex: Female

DRUGS (9)
  1. ERYTHROMYCIN [Interacting]
     Indication: PROPHYLAXIS
     Dosage: UNK
     Dates: start: 19950101
  2. CAELYX [Interacting]
     Indication: BREAST CANCER METASTATIC
     Dosage: 50 MG/M2, CYCLIC (2 CYCLES)
     Route: 042
  3. DOCETAXEL [Interacting]
     Indication: BREAST CANCER METASTATIC
     Dosage: 150 MG/M2, CYCLIC, 2 CYCLES
  4. OMEPRAZOLE [Suspect]
  5. GRANISETRON [Concomitant]
     Indication: PROPHYLAXIS OF NAUSEA AND VOMITING
  6. DEXAMETHASONE [Concomitant]
     Indication: PROPHYLAXIS OF NAUSEA AND VOMITING
  7. MORPHINE SULFATE [Concomitant]
  8. IBUPROFEN [Concomitant]
  9. METOCLOPRAMIDE [Concomitant]

REACTIONS (10)
  - ABDOMINAL DISTENSION [None]
  - ABDOMINAL PAIN [None]
  - DIARRHOEA [None]
  - DRUG INTERACTION [None]
  - FEBRILE NEUTROPENIA [None]
  - HAEMATEMESIS [None]
  - JAUNDICE CHOLESTATIC [None]
  - PSEUDOMEMBRANOUS COLITIS [None]
  - RASH ERYTHEMATOUS [None]
  - VOMITING [None]
